FAERS Safety Report 8439382-2 (Version None)
Quarter: 2012Q2

REPORT INFORMATION
  Report Type: 
  Country: None (occurrence: None)
  Receive Date: 20120615
  Receipt Date: 20120606
  Transmission Date: 20120825
  Serious: Yes (Death, Other)
  Sender: FDA-Public Use
  Company Number: GB-AMGEN-GBRSP2012032831

PATIENT
  Age: 64 Year
  Sex: Male
  Weight: 88.5 kg

DRUGS (10)
  1. ASPIRIN [Concomitant]
     Dosage: UNK
  2. ENBREL [Suspect]
     Dosage: ETANERCEPT CONTINUED
  3. CLOPIDOGREL [Concomitant]
     Dosage: UNK
  4. LISINOPRIL [Concomitant]
     Dosage: UNK
  5. OMEPRAZOLE [Concomitant]
     Dosage: UNK
  6. ATORVASTATIN CALCIUM [Concomitant]
     Dosage: UNK
  7. ENBREL [Suspect]
     Indication: RHEUMATOID ARTHRITIS
     Dosage: 50 MG, UNK
     Route: 058
     Dates: start: 20040501, end: 20120425
  8. NITROGLYCERIN [Concomitant]
     Dosage: UNK
  9. BISOPROLOL FUMARATE [Concomitant]
     Dosage: UNK
  10. NICOTINE [Concomitant]
     Dosage: UNK

REACTIONS (2)
  - MYOCARDIAL INFARCTION [None]
  - DEATH [None]
